FAERS Safety Report 21930122 (Version 1)
Quarter: 2023Q1

REPORT INFORMATION
  Report Type: Other
  Country: US (occurrence: None)
  Receive Date: 20230131
  Receipt Date: 20230131
  Transmission Date: 20230418
  Serious: Yes (Other)
  Sender: FDA-Public Use
  Company Number: US-ROCHE-3273728

PATIENT
  Age: 26 Year
  Sex: Male

DRUGS (1)
  1. XOLAIR [Suspect]
     Active Substance: OMALIZUMAB
     Indication: Idiopathic urticaria
     Dosage: NO
     Route: 065

REACTIONS (3)
  - Anaphylactic reaction [Not Recovered/Not Resolved]
  - Malaise [Not Recovered/Not Resolved]
  - Mastocytosis [Not Recovered/Not Resolved]
